FAERS Safety Report 17207379 (Version 2)
Quarter: 2019Q4

REPORT INFORMATION
  Report Type: Report from Study
  Country: None (occurrence: US)
  Receive Date: 20191227
  Receipt Date: 20191229
  Transmission Date: 20200122
  Serious: Yes (Hospitalization, Other)
  Sender: FDA-Public Use
  Company Number: US-ABBVIE-19K-163-2853819-00

PATIENT
  Age: 69 Year
  Sex: Male
  Weight: 104.42 kg

DRUGS (17)
  1. PROZAC [Concomitant]
     Active Substance: FLUOXETINE HYDROCHLORIDE
     Indication: PRODUCT USED FOR UNKNOWN INDICATION
     Dosage: AT MORNING
     Route: 065
  2. SYMBICORT [Concomitant]
     Active Substance: BUDESONIDE\FORMOTEROL FUMARATE DIHYDRATE
     Indication: PRODUCT USED FOR UNKNOWN INDICATION
     Dosage: 160/4.5 TWO PUFFS EVER DAY
  3. HUMIRA [Suspect]
     Active Substance: ADALIMUMAB
     Route: 058
     Dates: start: 20190408, end: 2019
  4. VITAMIN C [Concomitant]
     Active Substance: ASCORBIC ACID
     Indication: PRODUCT USED FOR UNKNOWN INDICATION
     Dosage: AT MORNING, MID AND NIGHT
  5. ARANESP [Concomitant]
     Active Substance: DARBEPOETIN ALFA
     Indication: PRODUCT USED FOR UNKNOWN INDICATION
     Dosage: ONE ON 21 JUN 2019 AND 11 JUL2019
     Route: 065
  6. LIPITOR [Concomitant]
     Active Substance: ATORVASTATIN CALCIUM
     Indication: PRODUCT USED FOR UNKNOWN INDICATION
     Dosage: AT MORNING
  7. TORSEMIDE. [Concomitant]
     Active Substance: TORSEMIDE
     Indication: PRODUCT USED FOR UNKNOWN INDICATION
     Dosage: ONE DAY EACH AT MORNING
  8. ALBUTEROL SULFATE INHALER [Concomitant]
     Indication: PRODUCT USED FOR UNKNOWN INDICATION
     Dosage: 108MCG/A AER, TWO PUFFS EVERY SIX HOURS AS NEEDED
  9. COREG [Concomitant]
     Active Substance: CARVEDILOL
     Indication: PRODUCT USED FOR UNKNOWN INDICATION
     Dosage: AT MORNING AND AT NIGHT
     Route: 065
  10. LANTUS [Concomitant]
     Active Substance: INSULIN GLARGINE
     Indication: PRODUCT USED FOR UNKNOWN INDICATION
     Dosage: AT MORNING AND NIGHT
  11. GABAPENTIN. [Concomitant]
     Active Substance: GABAPENTIN
     Indication: PRODUCT USED FOR UNKNOWN INDICATION
     Dosage: AT NIGHT
  12. ASPIRIN. [Concomitant]
     Active Substance: ASPIRIN
     Indication: PRODUCT USED FOR UNKNOWN INDICATION
     Dosage: ONE PER DAY AT MORNING
  13. FOLIC ACID. [Concomitant]
     Active Substance: FOLIC ACID
     Indication: PRODUCT USED FOR UNKNOWN INDICATION
     Dosage: ONE PER DAY
  14. HUMIRA [Suspect]
     Active Substance: ADALIMUMAB
     Indication: HIDRADENITIS
     Route: 058
     Dates: start: 20180319, end: 2019
  15. NOVOLOG [Concomitant]
     Active Substance: INSULIN ASPART
     Indication: PRODUCT USED FOR UNKNOWN INDICATION
     Dosage: 10 UNITS BEFORE MEALS PLUS SLIDING SCALE IF NEEDED.
  16. FERROUS SULFATE. [Concomitant]
     Active Substance: FERROUS SULFATE
     Indication: PRODUCT USED FOR UNKNOWN INDICATION
     Dosage: AT MORNING, MID AND NIGHT
  17. VITAMIN D [Concomitant]
     Active Substance: VITAMIN D NOS
     Indication: PRODUCT USED FOR UNKNOWN INDICATION
     Dosage: AT MORNING

REACTIONS (35)
  - Brain injury [Unknown]
  - Polyp [Unknown]
  - Skin infection [Recovered/Resolved]
  - Cystitis [Recovering/Resolving]
  - Pyuria [Unknown]
  - Anaemia [Unknown]
  - Fall [Unknown]
  - Headache [Unknown]
  - Muscle rupture [Unknown]
  - Loss of consciousness [Unknown]
  - Skin disorder [Not Recovered/Not Resolved]
  - Respiratory disorder [Unknown]
  - Fatigue [Unknown]
  - Musculoskeletal chest pain [Unknown]
  - Diarrhoea [Recovered/Resolved]
  - Vomiting [Recovered/Resolved]
  - Immune system disorder [Unknown]
  - Dizziness [Unknown]
  - Skin haemorrhage [Unknown]
  - Dyspnoea [Unknown]
  - Amnesia [Unknown]
  - Groin infection [Unknown]
  - Post procedural myocardial infarction [Unknown]
  - Disturbance in attention [Unknown]
  - Skin hypertrophy [Recovered/Resolved]
  - Blood magnesium decreased [Unknown]
  - Coronary arterial stent insertion [Unknown]
  - Fall [Unknown]
  - Pain [Unknown]
  - Blood glucose abnormal [Unknown]
  - Loss of consciousness [Unknown]
  - Bacteraemia [Recovering/Resolving]
  - Weight decreased [Unknown]
  - Hidradenitis [Not Recovered/Not Resolved]
  - Skin discharge [Not Recovered/Not Resolved]

NARRATIVE: CASE EVENT DATE: 20180319
